FAERS Safety Report 7761140-2 (Version None)
Quarter: 2011Q3

REPORT INFORMATION
  Report Type: 
  Country: None (occurrence: None)
  Receive Date: 20110920
  Receipt Date: 20110906
  Transmission Date: 20111222
  Serious: Yes (Hospitalization, Other)
  Sender: FDA-Public Use
  Company Number: GB-RANBAXY-2009RR-28198

PATIENT
  Age: 82 Year
  Sex: Female

DRUGS (5)
  1. ACETAMINPHEN AND CODEINE PHOSPHATE [Suspect]
     Indication: INTENTIONAL OVERDOSE
     Route: 048
  2. ASPIRIN [Suspect]
     Indication: INTENTIONAL OVERDOSE
     Route: 065
  3. CO-AMILOFRUSE [Suspect]
     Indication: PRODUCT USED FOR UNKNOWN INDICATION
     Route: 065
  4. IBUPROFEN [Suspect]
     Indication: INTENTIONAL OVERDOSE
     Route: 048
  5. CALCIUM CARBONATE [Suspect]
     Indication: INTENTIONAL OVERDOSE
     Route: 048

REACTIONS (6)
  - INTENTIONAL OVERDOSE [None]
  - ALANINE AMINOTRANSFERASE INCREASED [None]
  - PROTHROMBIN LEVEL INCREASED [None]
  - VASCULAR ANOMALY [None]
  - BLOOD ALKALINE PHOSPHATASE INCREASED [None]
  - SUICIDE ATTEMPT [None]
